FAERS Safety Report 21156096 (Version 1)
Quarter: 2022Q3

REPORT INFORMATION
  Report Type: Spontaneous
  Country: US (occurrence: US)
  Receive Date: 20220801
  Receipt Date: 20220801
  Transmission Date: 20221027
  Serious: No
  Sender: FDA-Public Use
  Company Number: US-BAYER-2022A097545

PATIENT
  Sex: Female

DRUGS (2)
  1. ALEVE [Suspect]
     Active Substance: NAPROXEN SODIUM
     Indication: Breast pain
  2. ALEVE [Suspect]
     Active Substance: NAPROXEN SODIUM
     Indication: Abdominal pain upper

REACTIONS (2)
  - Product use in unapproved indication [Unknown]
  - Product coating issue [None]
